FAERS Safety Report 14259136 (Version 7)
Quarter: 2020Q4

REPORT INFORMATION
  Report Type: Other
  Country: CA (occurrence: CA)
  Receive Date: 20171207
  Receipt Date: 20201007
  Transmission Date: 20210113
  Serious: Yes (Life-Threatening, Other)
  Sender: FDA-Public Use
  Company Number: CA-ROCHE-1982404

PATIENT
  Age: 74 Year
  Sex: Female
  Weight: 61.29 kg

DRUGS (18)
  1. ESBRIET [Suspect]
     Active Substance: PIRFENIDONE
     Route: 048
     Dates: start: 20171002
  2. COLCHICINE. [Concomitant]
     Active Substance: COLCHICINE
  3. ESBRIET [Suspect]
     Active Substance: PIRFENIDONE
     Indication: IDIOPATHIC PULMONARY FIBROSIS
     Route: 048
     Dates: start: 20170719, end: 201708
  4. ESBRIET [Suspect]
     Active Substance: PIRFENIDONE
     Route: 048
     Dates: start: 20170821
  5. ALENDRONATE [Concomitant]
     Active Substance: ALENDRONATE SODIUM
  6. PANTOPRAZOLE [Concomitant]
     Active Substance: PANTOPRAZOLE
  7. CORTISONE [Concomitant]
     Active Substance: CORTISONE
     Indication: BACK PAIN
  8. ESBRIET [Suspect]
     Active Substance: PIRFENIDONE
     Route: 048
     Dates: start: 201708
  9. ESBRIET [Suspect]
     Active Substance: PIRFENIDONE
     Route: 048
     Dates: start: 20170905
  10. ESBRIET [Suspect]
     Active Substance: PIRFENIDONE
     Route: 048
     Dates: start: 201709, end: 202006
  11. CANDESARTAN. [Concomitant]
     Active Substance: CANDESARTAN
  12. SENOKOT [Concomitant]
     Active Substance: SENNOSIDES
     Dosage: 1-2 TABS PRN
  13. BECLOMETHASONE [Concomitant]
     Active Substance: BECLOMETHASONE
  14. CORTISONE [Concomitant]
     Active Substance: CORTISONE
     Indication: ARTHRALGIA
  15. TYLENOL [Concomitant]
     Active Substance: ACETAMINOPHEN
     Dosage: 3 ONE TAB BID PRN
  16. AMLODIPINE [Concomitant]
     Active Substance: AMLODIPINE BESYLATE
  17. ROSUVASTATIN. [Concomitant]
     Active Substance: ROSUVASTATIN
  18. ESBRIET [Suspect]
     Active Substance: PIRFENIDONE
     Route: 048
     Dates: start: 201708

REACTIONS (21)
  - Decreased appetite [Recovering/Resolving]
  - Hypertension [Unknown]
  - Syncope [Unknown]
  - Weight increased [Unknown]
  - Loss of consciousness [Unknown]
  - Fall [Unknown]
  - Ill-defined disorder [Recovered/Resolved]
  - Asthenia [Recovering/Resolving]
  - Oral discomfort [Not Recovered/Not Resolved]
  - Taste disorder [Not Recovered/Not Resolved]
  - Fatigue [Not Recovered/Not Resolved]
  - Fatigue [Recovering/Resolving]
  - Dizziness [Recovering/Resolving]
  - Hand fracture [Recovered/Resolved]
  - Tongue discomfort [Not Recovered/Not Resolved]
  - Decreased appetite [Unknown]
  - Purpura [Recovering/Resolving]
  - Weight decreased [Recovering/Resolving]
  - Feeling hot [Unknown]
  - Blood sodium decreased [Recovered/Resolved]
  - Asthenia [Recovering/Resolving]

NARRATIVE: CASE EVENT DATE: 20170816
